FAERS Safety Report 16355629 (Version 1)
Quarter: 2019Q2

REPORT INFORMATION
  Report Type: Spontaneous
  Country: DE (occurrence: DE)
  Receive Date: 20190525
  Receipt Date: 20190525
  Transmission Date: 20190711
  Serious: Yes (Life-Threatening, Other)
  Sender: FDA-Public Use
  Company Number: DE-TEVA-2019-DE-1053125

PATIENT
  Age: 5 Week
  Sex: Male
  Weight: 2.4 kg

DRUGS (9)
  1. FUROSEMID [Concomitant]
     Active Substance: FUROSEMIDE
     Dosage: DAILY DOSE: 3 MG MILLGRAM(S) EVERY DAYS
  2. FLUCONAZOLE. [Suspect]
     Active Substance: FLUCONAZOLE
     Indication: INFECTION PROPHYLAXIS
     Route: 042
     Dates: start: 20190107
  3. FENTANYL. [Interacting]
     Active Substance: FENTANYL
     Indication: PAIN
     Dosage: 0.13 ?G/KG/MIN
     Route: 065
  4. MIDAZOLAM [Concomitant]
     Active Substance: MIDAZOLAM HYDROCHLORIDE
     Indication: SEDATION
     Dosage: 0.013 MG/KG/MIN
  5. MEROPENEM. [Concomitant]
     Active Substance: MEROPENEM
     Dosage: DAILY DOSE: 210 MG MILLGRAM(S) EVERY DAYS
  6. CLONIDIN [Concomitant]
     Active Substance: CLONIDINE
     Indication: SEDATION
     Dosage: 0.02 ?G/KG/MIN
  7. OMEPRAZOL [Concomitant]
     Active Substance: OMEPRAZOLE
  8. ZYVOXID [Interacting]
     Active Substance: LINEZOLID
     Indication: ENTEROCOCCAL INFECTION
     Dosage: DAILY DOSE: 75 MG MILLGRAM(S) EVERY DAYS
     Route: 042
     Dates: start: 20190105, end: 20190114
  9. PREDNISOLON [Concomitant]
     Active Substance: PREDNISOLONE

REACTIONS (10)
  - Seizure [Recovered/Resolved]
  - Bradycardia [Recovered/Resolved]
  - Autonomic nervous system imbalance [Recovered/Resolved]
  - Tachycardia [Recovered/Resolved]
  - Arrhythmia [Recovered/Resolved]
  - Drug interaction [Recovered/Resolved]
  - Serotonin syndrome [Recovered/Resolved]
  - Blood pressure increased [Recovered/Resolved]
  - Restlessness [Recovered/Resolved]
  - Generalised erythema [Recovered/Resolved]

NARRATIVE: CASE EVENT DATE: 20190114
